FAERS Safety Report 25143270 (Version 1)
Quarter: 2025Q2

REPORT INFORMATION
  Report Type: Spontaneous
  Country: CN (occurrence: CN)
  Receive Date: 20250401
  Receipt Date: 20250401
  Transmission Date: 20250717
  Serious: Yes (Other)
  Sender: SPECGX
  Company Number: CN-SPECGX-T202500620

PATIENT
  Age: 65 Year
  Sex: Male
  Weight: 65 kg

DRUGS (5)
  1. TYLOX [Suspect]
     Active Substance: ACETAMINOPHEN\OXYCODONE HYDROCHLORIDE
     Indication: Cancer pain
     Route: 065
  2. WARFARIN [Suspect]
     Active Substance: WARFARIN
     Indication: Anticoagulant therapy
     Dosage: 2.5 MILLIGRAM, QD
     Route: 048
  3. GEMCITABINE [Suspect]
     Active Substance: GEMCITABINE
     Indication: Chemotherapy
     Route: 065
  4. HEPARIN SODIUM [Suspect]
     Active Substance: HEPARIN SODIUM
     Indication: Anticoagulant therapy
     Dosage: 40 MILLIGRAM, Q12H (FOR 2 DAYS)
     Route: 058
     Dates: start: 20220102
  5. PACLITAXEL [Suspect]
     Active Substance: PACLITAXEL

REACTIONS (15)
  - Catheter placement [Unknown]
  - Hypertension [Unknown]
  - Coagulation test abnormal [Unknown]
  - International normalised ratio increased [Unknown]
  - Spinal osteoarthritis [Unknown]
  - Prothrombin time prolonged [Unknown]
  - Lumbar puncture [Unknown]
  - Prostatomegaly [Unknown]
  - Pelvic fluid collection [Unknown]
  - Cardiac valve disease [Unknown]
  - Blood potassium decreased [Unknown]
  - Nausea [Unknown]
  - Vomiting [Unknown]
  - Constipation [Unknown]
  - Drug ineffective [Unknown]
